FAERS Safety Report 16141024 (Version 1)
Quarter: 2019Q2

REPORT INFORMATION
  Report Type: Report from Study
  Country: US (occurrence: US)
  Receive Date: 20190401
  Receipt Date: 20190401
  Transmission Date: 20190711
  Serious: Yes (Other)
  Sender: FDA-Public Use
  Company Number: US-ROCHE-2289641

PATIENT

DRUGS (6)
  1. RITUXIMAB. [Suspect]
     Active Substance: RITUXIMAB
     Indication: DIFFUSE LARGE B-CELL LYMPHOMA
     Dosage: SIX OR EIGHT CYCLES
     Route: 042
  2. DOXORUBICIN [Suspect]
     Active Substance: DOXORUBICIN
     Indication: DIFFUSE LARGE B-CELL LYMPHOMA
     Dosage: SIX OR EIGHT CYCLES
     Route: 042
  3. VINCRISTINE [Suspect]
     Active Substance: VINCRISTINE
     Indication: DIFFUSE LARGE B-CELL LYMPHOMA
     Dosage: [MAXIMUM TOTAL, 2 MG], SIX OR EIGHT CYCLES
     Route: 042
  4. IBRUTINIB [Suspect]
     Active Substance: IBRUTINIB
     Indication: DIFFUSE LARGE B-CELL LYMPHOMA
     Route: 048
  5. CYCLOPHOSPHAMIDE. [Suspect]
     Active Substance: CYCLOPHOSPHAMIDE
     Indication: DIFFUSE LARGE B-CELL LYMPHOMA
     Dosage: SIX OR EIGHT CYCLES
     Route: 042
  6. PREDNISONE. [Suspect]
     Active Substance: PREDNISONE
     Indication: DIFFUSE LARGE B-CELL LYMPHOMA
     Dosage: SIX OR EIGHT CYCLES
     Route: 048

REACTIONS (32)
  - Febrile neutropenia [Unknown]
  - Neutropenia [Unknown]
  - Dehydration [Unknown]
  - Constipation [Unknown]
  - Hypokalaemia [Unknown]
  - Insomnia [Unknown]
  - Lung infection [Unknown]
  - Pyrexia [Unknown]
  - Platelet count decreased [Unknown]
  - Bronchopulmonary aspergillosis [Unknown]
  - Diarrhoea [Unknown]
  - Stomatitis [Unknown]
  - Neuropathy peripheral [Unknown]
  - Decreased appetite [Unknown]
  - Oedema peripheral [Unknown]
  - Pneumonitis [Unknown]
  - Leukopenia [Unknown]
  - Pneumonia [Unknown]
  - Neutrophil count decreased [Unknown]
  - Vomiting [Unknown]
  - Peripheral sensory neuropathy [Unknown]
  - Lymphocyte count decreased [Unknown]
  - Anaemia [Unknown]
  - Atrial fibrillation [Unknown]
  - Interstitial lung disease [Unknown]
  - Fatigue [Unknown]
  - Cough [Unknown]
  - Sepsis [Unknown]
  - Thrombocytopenia [Unknown]
  - Nausea [Unknown]
  - White blood cell count decreased [Unknown]
  - Headache [Unknown]
